FAERS Safety Report 19195001 (Version 1)
Quarter: 2021Q2

REPORT INFORMATION
  Report Type: Spontaneous
  Country: NL (occurrence: NL)
  Receive Date: 20210429
  Receipt Date: 20210429
  Transmission Date: 20210717
  Serious: Yes (Hospitalization, Disabling)
  Sender: FDA-Public Use
  Company Number: NL-MYLANLABS-2021M1025495

PATIENT
  Sex: Male

DRUGS (17)
  1. CEFTRIAXONE. [Suspect]
     Active Substance: CEFTRIAXONE
     Indication: ENTERAL NUTRITION
  2. GENTAMICIN. [Suspect]
     Active Substance: GENTAMICIN
     Indication: ENTERAL NUTRITION
  3. TPN [Suspect]
     Active Substance: AMINO ACIDS\DEXTROSE\ELECTROLYTES NOS\SOYBEAN OIL
     Indication: ENTERAL NUTRITION
     Dosage: VIA A PERIPHERAL IV LINE
     Route: 042
  4. ALLOPURINOL. [Suspect]
     Active Substance: ALLOPURINOL
     Indication: PROPHYLAXIS
     Route: 065
  5. AMPICILLIN [Suspect]
     Active Substance: AMPICILLIN
     Indication: NEONATAL RESPIRATORY FAILURE
     Dosage: VIA AN UMBILICAL LINE
     Route: 042
  6. DOPAMINE [Suspect]
     Active Substance: DOPAMINE HYDROCHLORIDE
     Indication: NEONATAL RESPIRATORY FAILURE
     Dosage: VIA AN UMBILICAL LINE
     Route: 042
  7. CAFFEINE. [Suspect]
     Active Substance: CAFFEINE
     Indication: NEONATAL RESPIRATORY FAILURE
     Dosage: VIA AN UMBILICAL LINE
     Route: 042
  8. DOPAMINE [Suspect]
     Active Substance: DOPAMINE HYDROCHLORIDE
     Indication: ENTERAL NUTRITION
  9. FENTANYL. [Suspect]
     Active Substance: FENTANYL
     Indication: ENTERAL NUTRITION
  10. NITROGLYCERINE [Suspect]
     Active Substance: NITROGLYCERIN
     Indication: PERIPHERAL ARTERY OCCLUSION
     Route: 061
  11. FENTANYL. [Suspect]
     Active Substance: FENTANYL
     Indication: NEONATAL RESPIRATORY FAILURE
     Dosage: VIA AN UMBILICAL LINE
     Route: 042
  12. AMPICILLIN [Suspect]
     Active Substance: AMPICILLIN
     Indication: ENTERAL NUTRITION
  13. NORMAL SALINE [Concomitant]
     Active Substance: SODIUM CHLORIDE
     Indication: ADMINISTRATION SITE EXTRAVASATION
     Route: 065
  14. CAFFEINE. [Suspect]
     Active Substance: CAFFEINE
     Indication: ENTERAL NUTRITION
  15. CEFTRIAXONE. [Suspect]
     Active Substance: CEFTRIAXONE
     Indication: NEONATAL RESPIRATORY FAILURE
     Dosage: VIA AN UMBILICAL LINE
     Route: 042
  16. TPN [Suspect]
     Active Substance: AMINO ACIDS\DEXTROSE\ELECTROLYTES NOS\SOYBEAN OIL
     Indication: NEONATAL RESPIRATORY FAILURE
     Dosage: VIA AN UMBILICAL LINE
     Route: 042
  17. GENTAMICIN. [Suspect]
     Active Substance: GENTAMICIN
     Indication: NEONATAL RESPIRATORY FAILURE
     Dosage: VIA AN UMBILICAL LINE
     Route: 042

REACTIONS (9)
  - Administration site extravasation [Recovering/Resolving]
  - Dry gangrene [Recovering/Resolving]
  - Product administration error [Unknown]
  - Peripheral ischaemia [Recovering/Resolving]
  - Peripheral oedema neonatal [Recovering/Resolving]
  - Peripheral artery occlusion [Recovering/Resolving]
  - Peripheral artery thrombosis [Recovering/Resolving]
  - Drug ineffective [Unknown]
  - Arterial disorder [Recovering/Resolving]
